FAERS Safety Report 20957887 (Version 2)
Quarter: 2022Q2

REPORT INFORMATION
  Report Type: Spontaneous
  Country: US (occurrence: US)
  Receive Date: 20220614
  Receipt Date: 20220616
  Transmission Date: 20220721
  Serious: Yes (Other)
  Sender: FDA-Public Use
  Company Number: US-PFIZER INC-PV202200000883

PATIENT
  Age: 39 Year
  Sex: Male

DRUGS (22)
  1. XANAX [Suspect]
     Active Substance: ALPRAZOLAM
     Indication: Depression
     Dosage: UNK
  2. XANAX [Suspect]
     Active Substance: ALPRAZOLAM
     Indication: Bipolar II disorder
  3. XANAX [Suspect]
     Active Substance: ALPRAZOLAM
     Indication: Anxiety
  4. XANAX [Suspect]
     Active Substance: ALPRAZOLAM
     Indication: Borderline personality disorder
  5. GABAPENTIN [Suspect]
     Active Substance: GABAPENTIN
     Indication: Depression
     Dosage: UNK
  6. GABAPENTIN [Suspect]
     Active Substance: GABAPENTIN
     Indication: Bipolar II disorder
  7. GABAPENTIN [Suspect]
     Active Substance: GABAPENTIN
     Indication: Anxiety
  8. GABAPENTIN [Suspect]
     Active Substance: GABAPENTIN
     Indication: Borderline personality disorder
  9. ZOLOFT [Suspect]
     Active Substance: SERTRALINE HYDROCHLORIDE
     Indication: Depression
     Dosage: UNK
  10. ZOLOFT [Suspect]
     Active Substance: SERTRALINE HYDROCHLORIDE
     Indication: Bipolar II disorder
  11. ZOLOFT [Suspect]
     Active Substance: SERTRALINE HYDROCHLORIDE
     Indication: Anxiety
  12. ZOLOFT [Suspect]
     Active Substance: SERTRALINE HYDROCHLORIDE
     Indication: Borderline personality disorder
  13. LORAZEPAM [Suspect]
     Active Substance: LORAZEPAM
     Dosage: UNK
  14. WELLBUTRIN [Suspect]
     Active Substance: BUPROPION HYDROCHLORIDE
     Dosage: UNK
  15. TEGRETOL [Suspect]
     Active Substance: CARBAMAZEPINE
     Dosage: UNK
  16. BUSPAR [Suspect]
     Active Substance: BUSPIRONE HYDROCHLORIDE
     Dosage: UNK
  17. RISPERIDONE [Suspect]
     Active Substance: RISPERIDONE
     Dosage: UNK
  18. SEROQUEL [Suspect]
     Active Substance: QUETIAPINE FUMARATE
     Dosage: UNK
  19. PAXIL [Suspect]
     Active Substance: PAROXETINE HYDROCHLORIDE
     Dosage: UNK
  20. PROZAC [Suspect]
     Active Substance: FLUOXETINE HYDROCHLORIDE
     Dosage: UNK
  21. LAMICTAL [Suspect]
     Active Substance: LAMOTRIGINE
     Dosage: UNK
  22. KLONOPIN [Suspect]
     Active Substance: CLONAZEPAM
     Dosage: UNK

REACTIONS (6)
  - Suicidal ideation [Unknown]
  - Drug ineffective [Unknown]
  - Feeling abnormal [Unknown]
  - Asthenia [Unknown]
  - Lethargy [Unknown]
  - Weight increased [Unknown]
